FAERS Safety Report 5567069-2 (Version None)
Quarter: 2007Q4

REPORT INFORMATION
  Report Type: 
  Country: None (occurrence: None)
  Receive Date: 20071219
  Receipt Date: 20071212
  Transmission Date: 20080405
  Serious: Yes (Hospitalization)
  Sender: FDA-Public Use
  Company Number: US-WYE-H01691807

PATIENT
  Sex: Female

DRUGS (5)
  1. EFFEXOR XR [Suspect]
     Indication: ANXIETY
     Route: 048
  2. EFFEXOR XR [Suspect]
     Indication: DEPRESSION
  3. AMBIEN [Suspect]
     Indication: ANXIETY
     Route: 048
  4. WARFARIN SODIUM [Concomitant]
     Dosage: UNKNOWN
  5. XANAX [Suspect]
     Indication: ANXIETY

REACTIONS (2)
  - FALL [None]
  - HAEMATOMA [None]
